FAERS Safety Report 7785556-3 (Version None)
Quarter: 2011Q3

REPORT INFORMATION
  Report Type: 
  Country: None (occurrence: None)
  Receive Date: 20110929
  Receipt Date: 20110926
  Transmission Date: 20111222
  Serious: Yes (Hospitalization, Other)
  Sender: FDA-Public Use
  Company Number: US-BAYER-200932018NA

PATIENT
  Age: 50 Year
  Sex: Female

DRUGS (15)
  1. FERROUS SULFATE TAB [Concomitant]
  2. BETASERON [Suspect]
     Indication: RELAPSING-REMITTING MULTIPLE SCLEROSIS
     Route: 058
     Dates: start: 20061202, end: 20070406
  3. BETASERON [Suspect]
     Route: 058
     Dates: start: 20090804, end: 20090820
  4. BETASERON [Suspect]
     Route: 058
     Dates: start: 20081001, end: 20081201
  5. BETASERON [Suspect]
     Dosage: UNK
     Dates: start: 20100701, end: 20100901
  6. UNKNOWN DRUG [Concomitant]
     Indication: THYROID DISORDER
  7. BETASERON [Suspect]
     Route: 058
     Dates: start: 20070516, end: 20080131
  8. BETASERON [Suspect]
     Route: 058
     Dates: start: 20091119, end: 20091221
  9. BETASERON [Suspect]
     Dosage: 4 MIU, QOD
     Route: 058
     Dates: start: 20110808, end: 20110814
  10. BETASERON [Suspect]
     Route: 058
     Dates: start: 20081212, end: 20081226
  11. BETASERON [Suspect]
     Route: 058
     Dates: start: 20090116, end: 20090214
  12. BETASERON [Suspect]
     Route: 058
     Dates: start: 20090216, end: 20090305
  13. BETASERON [Suspect]
     Route: 058
     Dates: start: 20090513, end: 20090626
  14. BETASERON [Suspect]
     Dosage: UNK
     Dates: start: 20100521, end: 20100608
  15. BETASERON [Suspect]
     Dosage: 8 MIU, QOD
     Route: 058
     Dates: start: 20110116, end: 20110520

REACTIONS (27)
  - DIABETES MELLITUS [None]
  - KIDNEY ENLARGEMENT [None]
  - INJECTION SITE INJURY [None]
  - HYPOAESTHESIA [None]
  - DIZZINESS [None]
  - THYROID DISORDER [None]
  - SPLENIC ARTERY ANEURYSM [None]
  - INSOMNIA [None]
  - FEELING OF BODY TEMPERATURE CHANGE [None]
  - DIARRHOEA [None]
  - ATRIAL FIBRILLATION [None]
  - FALL [None]
  - FOOT FRACTURE [None]
  - DRUG HYPERSENSITIVITY [None]
  - WHEEZING [None]
  - INJECTION SITE ERYTHEMA [None]
  - PYREXIA [None]
  - VOMITING [None]
  - FEELING COLD [None]
  - COUGH [None]
  - DEPRESSION [None]
  - ANAEMIA [None]
  - DYSPNOEA [None]
  - INTRACARDIAC THROMBUS [None]
  - NAUSEA [None]
  - MENORRHAGIA [None]
  - BACK PAIN [None]
